FAERS Safety Report 8021778-4 (Version None)
Quarter: 2012Q1

REPORT INFORMATION
  Report Type: 
  Country: None (occurrence: None)
  Receive Date: 20120104
  Receipt Date: 20111228
  Transmission Date: 20120608
  Serious: Yes (Other)
  Sender: FDA-Public Use
  Company Number: BR-SANOFI-AVENTIS-2011SA085341

PATIENT
  Sex: Male

DRUGS (1)
  1. ALLEGRA [Suspect]
     Route: 065

REACTIONS (2)
  - MEDICATION ERROR [None]
  - ACCIDENTAL EXPOSURE [None]
